FAERS Safety Report 15242099 (Version 1)
Quarter: 2018Q3

REPORT INFORMATION
  Report Type: Spontaneous
  Country: US (occurrence: US)
  Receive Date: 20180806
  Receipt Date: 20180806
  Transmission Date: 20181010
  Serious: No
  Sender: FDA-Public Use
  Company Number: US-SHIRE-US201829149

PATIENT
  Sex: Male

DRUGS (1)
  1. XIIDRA [Suspect]
     Active Substance: LIFITEGRAST
     Indication: DRY EYE
     Dosage: 1 GTT, UNK
     Route: 047
     Dates: start: 20180717

REACTIONS (5)
  - Product quality issue [Unknown]
  - Instillation site coldness [Unknown]
  - Drug administration error [Unknown]
  - Extra dose administered [Unknown]
  - Instillation site lacrimation [Unknown]
